FAERS Safety Report 18191337 (Version 1)
Quarter: 2020Q3

REPORT INFORMATION
  Report Type: Spontaneous
  Country: US (occurrence: US)
  Receive Date: 20200824
  Receipt Date: 20200824
  Transmission Date: 20201103
  Serious: Yes (Other)
  Sender: FDA-Public Use
  Company Number: None

PATIENT
  Age: 59 Year
  Sex: Female
  Weight: 65.25 kg

DRUGS (1)
  1. VENLAFAXINE HYDROCHLORIDE EXTENDED RELEASE 150 MG [Suspect]
     Active Substance: VENLAFAXINE HYDROCHLORIDE
     Indication: DEPRESSION
     Dosage: ?          QUANTITY:2 CAPSULE(S);?
     Route: 048

REACTIONS (5)
  - Dizziness [None]
  - Balance disorder [None]
  - Gait disturbance [None]
  - Head discomfort [None]
  - Product quality issue [None]

NARRATIVE: CASE EVENT DATE: 20200824
